FAERS Safety Report 18940575 (Version 4)
Quarter: 2021Q2

REPORT INFORMATION
  Report Type: Report from Study
  Country: GB (occurrence: GB)
  Receive Date: 20210225
  Receipt Date: 20210521
  Transmission Date: 20210717
  Serious: Yes (Hospitalization)
  Sender: FDA-Public Use
  Company Number: GB-NOVOPROD-788803

PATIENT
  Age: 48 Year
  Sex: Female
  Weight: 98 kg

DRUGS (6)
  1. LIRAGLUTIDE 6MG/ML PDS290 [Suspect]
     Active Substance: LIRAGLUTIDE
     Indication: OBESITY
     Dosage: 3.0 MG
     Dates: start: 20191107, end: 20201007
  2. LIRAGLUTIDE 6MG/ML PDS290 [Suspect]
     Active Substance: LIRAGLUTIDE
     Dosage: 2.4 MG
     Dates: start: 20201208
  3. LIRAGLUTIDE 6MG/ML PDS290 [Suspect]
     Active Substance: LIRAGLUTIDE
     Dosage: 3.0 MG
     Dates: start: 20201215
  4. LIRAGLUTIDE 6MG/ML PDS290 [Suspect]
     Active Substance: LIRAGLUTIDE
     Dosage: 1.2 MG
     Dates: start: 20201124
  5. LIRAGLUTIDE 6MG/ML PDS290 [Suspect]
     Active Substance: LIRAGLUTIDE
     Dosage: 1.8 MG
     Dates: start: 20201201
  6. LIRAGLUTIDE 6MG/ML PDS290 [Suspect]
     Active Substance: LIRAGLUTIDE
     Dosage: 0.6 MG
     Dates: start: 20201117

REACTIONS (2)
  - Cholecystitis [Recovered/Resolved]
  - Cholelithiasis [Recovered/Resolved with Sequelae]

NARRATIVE: CASE EVENT DATE: 20201009
